FAERS Safety Report 21754357 (Version 3)
Quarter: 2023Q1

REPORT INFORMATION
  Report Type: Report from Study
  Country: US (occurrence: US)
  Receive Date: 20221220
  Receipt Date: 20230221
  Transmission Date: 20230418
  Serious: Yes (Other)
  Sender: FDA-Public Use
  Company Number: US-ALXN-A202215837

PATIENT
  Sex: Female

DRUGS (1)
  1. STRENSIQ [Suspect]
     Active Substance: ASFOTASE ALFA
     Indication: Product used for unknown indication
     Dosage: UNK
     Route: 065

REACTIONS (12)
  - Seizure [Unknown]
  - Dyspnoea [Unknown]
  - Chest discomfort [Unknown]
  - Throat tightness [Unknown]
  - Tremor [Unknown]
  - Sensory loss [Unknown]
  - Infectious mononucleosis [Not Recovered/Not Resolved]
  - Myalgia [Unknown]
  - Hepatomegaly [Unknown]
  - Abdominal pain upper [Unknown]
  - Asthenia [Not Recovered/Not Resolved]
  - Splenomegaly [Unknown]

NARRATIVE: CASE EVENT DATE: 20221213
